FAERS Safety Report 9338691 (Version 1)
Quarter: 2013Q2

REPORT INFORMATION
  Report Type: Spontaneous
  Country: US (occurrence: US)
  Receive Date: 20130610
  Receipt Date: 20130610
  Transmission Date: 20140414
  Serious: No
  Sender: FDA-Public Use
  Company Number: US-BAYER-2013-068111

PATIENT
  Age: 51 Year
  Sex: Female

DRUGS (1)
  1. ANGELIQ [Suspect]

REACTIONS (1)
  - Expired drug administered [None]
